FAERS Safety Report 25487256 (Version 1)
Quarter: 2025Q2

REPORT INFORMATION
  Report Type: Spontaneous
  Country: IT (occurrence: IT)
  Receive Date: 20250627
  Receipt Date: 20250627
  Transmission Date: 20250716
  Serious: Yes (Other)
  Sender: RANBAXY
  Company Number: IT-SUN PHARMACEUTICAL INDUSTRIES LTD-2025R1-513591

PATIENT
  Age: 19 Year
  Sex: Female

DRUGS (1)
  1. VALACYCLOVIR HYDROCHLORIDE [Suspect]
     Active Substance: VALACYCLOVIR HYDROCHLORIDE
     Indication: Congenital cytomegalovirus infection
     Route: 065

REACTIONS (3)
  - Chronic villitis of unknown etiology [Unknown]
  - Exposure during pregnancy [Unknown]
  - Foetal growth restriction [Unknown]
